FAERS Safety Report 6161399-1 (Version None)
Quarter: 2009Q2

REPORT INFORMATION
  Report Type: 
  Country: None (occurrence: None)
  Receive Date: 20090417
  Receipt Date: 20090411
  Transmission Date: 20091009
  Serious: Yes (Hospitalization)
  Sender: FDA-Public Use
  Company Number: CHPA2009US09253

PATIENT
  Age: 69 Year
  Sex: Female
  Weight: 81.6 kg

DRUGS (1)
  1. TRIAMINIC NASAL + SINUS CONGESTION (NCH) (XYLOMETAZOLINE HYDROCHLORIDE [Suspect]
     Dosage: ONCE/SINGLE, NASAL
     Route: 045
     Dates: start: 20090410, end: 20090410

REACTIONS (5)
  - ABASIA [None]
  - DIZZINESS [None]
  - DYSSTASIA [None]
  - NAUSEA [None]
  - PANIC ATTACK [None]
